FAERS Safety Report 5223641-0 (Version None)
Quarter: 2007Q1

REPORT INFORMATION
  Report Type: 
  Country: None (occurrence: None)
  Receive Date: 20070125
  Receipt Date: 20070115
  Transmission Date: 20070707
  Serious: Yes (Death)
  Sender: FDA-Public Use
  Company Number: FRWYE200017JAN07

PATIENT
  Age: 51 Year
  Sex: Male

DRUGS (3)
  1. EFFEXOR [Suspect]
     Dosage: UNKNOWN AMOUNT RESULTING IN BLOOD LEVEL OF 16.5
     Route: 048
     Dates: start: 20040401, end: 20040401
  2. ALCOHOL (ETHANOL) [Suspect]
     Dosage: UNKNOWN AMOUNT RESULTING IN BLOOD LEVEL OF 3.25 G/L
     Route: 048
     Dates: start: 20040401, end: 20040401
  3. TERCIAN (CYAMEMAZINE) [Suspect]
     Dosage: UNKNOWN AMOUNT RESULTING IN BLOOD LEVEL OF 0.75 MG/L
     Route: 048
     Dates: start: 20040401, end: 20040401

REACTIONS (2)
  - DRUG INTERACTION [None]
  - MULTIPLE DRUG OVERDOSE [None]
